FAERS Safety Report 21207876 (Version 1)
Quarter: 2022Q3

REPORT INFORMATION
  Report Type: Spontaneous
  Country: TW (occurrence: TW)
  Receive Date: 20220812
  Receipt Date: 20220812
  Transmission Date: 20221026
  Serious: Yes (Other)
  Sender: FDA-Public Use
  Company Number: TW-SA-2022SA332149

PATIENT

DRUGS (2)
  1. RIFAPENTINE [Suspect]
     Active Substance: RIFAPENTINE
     Indication: Antibiotic prophylaxis
     Dosage: UNK UNK, QW
  2. ISONIAZID [Suspect]
     Active Substance: ISONIAZID
     Indication: Antibiotic prophylaxis
     Dosage: UNK UNK, QW

REACTIONS (2)
  - Hypertension [Unknown]
  - Toxicity to various agents [Unknown]
